FAERS Safety Report 6928286-X (Version None)
Quarter: 2010Q3

REPORT INFORMATION
  Report Type: 
  Country: None (occurrence: None)
  Receive Date: 20100817
  Receipt Date: 20100809
  Transmission Date: 20110219
  Serious: Yes (Hospitalization)
  Sender: FDA-Public Use
  Company Number: US-ROCHE-720312

PATIENT
  Sex: Female

DRUGS (4)
  1. PEGASYS [Suspect]
     Indication: PRODUCT USED FOR UNKNOWN INDICATION
     Route: 065
  2. ACIPHEX [Concomitant]
  3. SYNTHROID [Concomitant]
  4. ALBUTEROL [Concomitant]
     Dosage: DRUG REPORTED: ALBUTERAL

REACTIONS (6)
  - DYSPNOEA [None]
  - FAECAL INCONTINENCE [None]
  - MOVEMENT DISORDER [None]
  - SPEECH DISORDER [None]
  - TUNNEL VISION [None]
  - VERTIGO [None]
